FAERS Safety Report 4486389-6 (Version None)
Quarter: 2004Q4

REPORT INFORMATION
  Report Type: 
  Country: None (occurrence: None)
  Receive Date: 20041026
  Receipt Date: 20041026
  Transmission Date: 20050328
  Serious: Yes (Hospitalization)
  Sender: FDA-Public Use
  Company Number: None

PATIENT
  Age: 52 Year
  Sex: Male

DRUGS (6)
  1. MINOXIDIL [Suspect]
     Indication: HYPERTENSION
     Dosage: 5 MG   BID   ORAL
     Route: 048
  2. LABETALOL HCL [Concomitant]
  3. ASPIRIN [Concomitant]
  4. SEVELAMER [Concomitant]
  5. SILDENAFIL [Concomitant]
  6. IBUPROFEN [Concomitant]

REACTIONS (1)
  - PERICARDIAL EFFUSION [None]
